FAERS Safety Report 5922588-1 (Version None)
Quarter: 2008Q4

REPORT INFORMATION
  Report Type: 
  Country: None (occurrence: None)
  Receive Date: 20081017
  Receipt Date: 20081010
  Transmission Date: 20090506
  Serious: Yes (Death, Hospitalization)
  Sender: FDA-Public Use
  Company Number: FR-ROCHE-591497

PATIENT
  Sex: Male
  Weight: 64 kg

DRUGS (3)
  1. CAPECITABINE [Suspect]
     Dosage: DOSAGE FORM TAKEN AS PER PROTOCOL. FREQUENCY AS PER PROTOCOL: DAY 1 TO DAY 14 EVERY THREE WEEKS.
     Route: 048
     Dates: start: 20070329
  2. BEVACIZUMAB [Suspect]
     Dosage: FREQUENCY AS PER PROTOCL: EVERY THREE WEEKS.
     Route: 042
     Dates: start: 20070329
  3. IRINOTECAN HYDROCHLORIDE [Suspect]
     Dosage: FREQUENCY AS PER PROTOCOL: DAY 1 EVERY THREE WEEKS.
     Route: 042
     Dates: start: 20070329

REACTIONS (1)
  - GENERAL PHYSICAL HEALTH DETERIORATION [None]
